FAERS Safety Report 20616304 (Version 5)
Quarter: 2022Q3

REPORT INFORMATION
  Report Type: Report from Study
  Country: US (occurrence: US)
  Receive Date: 20220321
  Receipt Date: 20220926
  Transmission Date: 20221027
  Serious: Yes (Hospitalization)
  Sender: FDA-Public Use
  Company Number: US-EXELIXIS-CABO-22049527

PATIENT
  Sex: Male
  Weight: 113.38 kg

DRUGS (4)
  1. CABOMETYX [Suspect]
     Active Substance: CABOZANTINIB S-MALATE
     Indication: Renal cancer
     Dosage: 40 MG, QD
     Route: 048
     Dates: start: 20220210, end: 202203
  2. CABOMETYX [Suspect]
     Active Substance: CABOZANTINIB S-MALATE
     Dosage: 40 MG, QD
     Route: 048
  3. CABOMETYX [Suspect]
     Active Substance: CABOZANTINIB S-MALATE
     Dosage: 20 MG, QD
     Route: 048
  4. OPDIVO [Concomitant]
     Active Substance: NIVOLUMAB

REACTIONS (10)
  - Pneumothorax [Unknown]
  - Increased appetite [Unknown]
  - Sensitive skin [Unknown]
  - Tanning [Unknown]
  - Photosensitivity reaction [Unknown]
  - Neuropathy peripheral [Unknown]
  - Dry skin [Unknown]
  - Constipation [Unknown]
  - Fatigue [Unknown]
  - Diarrhoea [Recovering/Resolving]
